FAERS Safety Report 23153443 (Version 1)
Quarter: 2023Q4

REPORT INFORMATION
  Report Type: Spontaneous
  Country: US (occurrence: None)
  Receive Date: 20231106
  Receipt Date: 20231106
  Transmission Date: 20240110
  Serious: Yes (Hospitalization)
  Sender: FDA-Public Use
  Company Number: None

PATIENT
  Age: 78 Year
  Sex: Female
  Weight: 63 kg

DRUGS (5)
  1. TEPEZZA [Suspect]
     Active Substance: TEPROTUMUMAB-TRBW
     Indication: Endocrine ophthalmopathy
     Dates: start: 20230517, end: 20230920
  2. Enanapril [Concomitant]
  3. METFORMIN [Concomitant]
     Active Substance: METFORMIN HYDROCHLORIDE
  4. METHIMAZOLE [Concomitant]
     Active Substance: METHIMAZOLE
  5. VITAMIN D [Concomitant]
     Active Substance: VITAMIN D NOS

REACTIONS (3)
  - Gait inability [None]
  - Confusional state [None]
  - Muscular weakness [None]

NARRATIVE: CASE EVENT DATE: 20231102
